FAERS Safety Report 4920524-8 (Version None)
Quarter: 2006Q1

REPORT INFORMATION
  Report Type: 
  Country: None (occurrence: None)
  Receive Date: 20060223
  Receipt Date: 20060131
  Transmission Date: 20060701
  Serious: Yes (Hospitalization)
  Sender: FDA-Public Use
  Company Number: NL-SANOFI-SYNTHELABO-F01200600263

PATIENT
  Sex: Female

DRUGS (8)
  1. OXALIPLATIN [Suspect]
     Indication: COLORECTAL CANCER
     Route: 041
     Dates: start: 20051102, end: 20051102
  2. CAPECITABINE [Suspect]
     Dosage: 2000MG BID 4000 MG
     Route: 048
     Dates: start: 20051102
  3. BEVACIZUMAB [Suspect]
     Route: 041
     Dates: start: 20051011, end: 20051011
  4. CETUXIMAB [Suspect]
     Dosage: 400 MG/M2 DAY 1 OF CYCLE 1, THEREAFTER 250 MG/M2 WEEKLY
     Route: 041
     Dates: start: 20051025
  5. DEXAMETHASONE SODIUM PHOSPHATE [Concomitant]
  6. ZOFRAN [Concomitant]
  7. TAVEGIL [Concomitant]
  8. DIAZEPAM [Concomitant]

REACTIONS (2)
  - LARYNGOSPASM [None]
  - MUSCLE SPASMS [None]
